FAERS Safety Report 18670932 (Version 2)
Quarter: 2021Q1

REPORT INFORMATION
  Report Type: Other
  Country: RU (occurrence: RU)
  Receive Date: 20201228
  Receipt Date: 20210104
  Transmission Date: 20210419
  Serious: Yes (Other)
  Sender: FDA-Public Use
  Company Number: RU-EMD SERONO-9207546

PATIENT
  Age: 72 Year
  Sex: Male
  Weight: 87 kg

DRUGS (12)
  1. METFORMIN [Suspect]
     Active Substance: METFORMIN HYDROCHLORIDE
     Dosage: THERAPY START DATE: 2016
  2. METFORMIN [Suspect]
     Active Substance: METFORMIN HYDROCHLORIDE
     Dosage: THERAPY START DATE: 2019
  3. METFORMIN [Suspect]
     Active Substance: METFORMIN HYDROCHLORIDE
     Indication: TYPE 2 DIABETES MELLITUS
     Dates: start: 2004
  4. VILDAGLIPTIN [Concomitant]
     Active Substance: VILDAGLIPTIN
     Indication: TYPE 2 DIABETES MELLITUS
     Dosage: THERAPY START DATE: 2016
     Dates: end: 2019
  5. GLICLAZIDE [Concomitant]
     Active Substance: GLICLAZIDE
     Dates: start: 2014
  6. LIXISENATIDE [Concomitant]
     Active Substance: LIXISENATIDE
     Dosage: THERAPY START DATE: 2019
     Route: 058
     Dates: end: 202003
  7. LIXISENATIDE [Concomitant]
     Active Substance: LIXISENATIDE
     Dosage: DOSE REDUCED?THERAPY START DATE: MAR 2020
     Route: 058
  8. GLICLAZIDE [Concomitant]
     Active Substance: GLICLAZIDE
     Dosage: THERAPY START DATE: 2016
     Dates: end: 2019
  9. LIXISENATIDE [Concomitant]
     Active Substance: LIXISENATIDE
     Indication: TYPE 2 DIABETES MELLITUS
     Dosage: THERAPY START DATE: 2019
     Route: 058
     Dates: end: 2019
  10. GLICLAZIDE [Concomitant]
     Active Substance: GLICLAZIDE
     Indication: TYPE 2 DIABETES MELLITUS
  11. INSULIN GLARGINE [Concomitant]
     Active Substance: INSULIN GLARGINE
     Indication: TYPE 2 DIABETES MELLITUS
     Dosage: THERAPY START DATE: 2019
     Dates: end: 202003
  12. INSULIN GLARGINE [Concomitant]
     Active Substance: INSULIN GLARGINE
     Dosage: DOSE REDUCED?THERAPY START DATE: MAR 2020

REACTIONS (1)
  - Diabetes mellitus inadequate control [Recovering/Resolving]

NARRATIVE: CASE EVENT DATE: 2014
